FAERS Safety Report 18622350 (Version 1)
Quarter: 2020Q4

REPORT INFORMATION
  Report Type: Spontaneous
  Country: US (occurrence: US)
  Receive Date: 20201215
  Receipt Date: 20201215
  Transmission Date: 20210114
  Serious: Yes (Other)
  Sender: FDA-Public Use
  Company Number: None

PATIENT
  Age: 64 Year
  Sex: Female
  Weight: 56.25 kg

DRUGS (7)
  1. GENERIC BP (ZIAC) [Concomitant]
  2. 81 MG ASPIRIN [Concomitant]
     Active Substance: ASPIRIN
  3. VASCEPA [Suspect]
     Active Substance: ICOSAPENT ETHYL
     Indication: CARDIOVASCULAR EVENT PROPHYLAXIS
     Dosage: ?          QUANTITY:2 DF DOSAGE FORM;?
     Route: 048
     Dates: start: 20200627, end: 20200827
  4. PROBIOTIC [Concomitant]
     Active Substance: PROBIOTICS NOS
  5. GENERIC SYNTHROID [Concomitant]
     Active Substance: LEVOTHYROXINE SODIUM
  6. OVER 50 MULT-VITAMIN [Concomitant]
  7. GENERIC STATIN [Concomitant]

REACTIONS (4)
  - Pain in extremity [None]
  - Myocardial infarction [None]
  - Chest discomfort [None]
  - Pain in jaw [None]

NARRATIVE: CASE EVENT DATE: 20200819
